FAERS Safety Report 15159399 (Version 2)
Quarter: 2018Q3

REPORT INFORMATION
  Report Type: Spontaneous
  Country: CN (occurrence: CN)
  Receive Date: 20180718
  Receipt Date: 20180726
  Transmission Date: 20181010
  Serious: Yes (Other)
  Sender: FDA-Public Use
  Company Number: CN-BAYER-2018-130068

PATIENT
  Age: 28 Year
  Sex: Female

DRUGS (2)
  1. YASMIN [Suspect]
     Active Substance: DROSPIRENONE\ETHINYL ESTRADIOL
     Indication: POLYCYSTIC OVARIES
     Dosage: 1 DF, QD (EVERY NIGHT)
     Route: 048
     Dates: start: 2014
  2. RIFAMPICIN [Interacting]
     Active Substance: RIFAMPIN
     Indication: PULMONARY TUBERCULOSIS
     Dosage: IN THE MORING
     Route: 048
     Dates: start: 20180711

REACTIONS (4)
  - Labelled drug-drug interaction medication error [None]
  - Metrorrhagia [None]
  - Product use in unapproved indication [None]
  - Tuberculosis [None]

NARRATIVE: CASE EVENT DATE: 20180710
